FAERS Safety Report 4384708-2 (Version None)
Quarter: 2004Q2

REPORT INFORMATION
  Report Type: 
  Country: None (occurrence: None)
  Receive Date: 20040622
  Receipt Date: 20040622
  Transmission Date: 20050107
  Serious: Yes (Life-Threatening, Other)
  Sender: FDA-Public Use
  Company Number: None

PATIENT
  Age: 62 Year
  Sex: Female
  Weight: 129.2752 kg

DRUGS (2)
  1. CATAPRES-TTS-2 [Suspect]
     Indication: HYPERTENSION
     Dosage: APPLY ONE PATCH ONCE A WEEK TOPICAL
     Route: 048
     Dates: start: 20020213, end: 20020318
  2. DIOVAN HCT [Concomitant]

REACTIONS (4)
  - APPLICATION SITE EXCORIATION [None]
  - CAUSTIC INJURY [None]
  - MEDICATION ERROR [None]
  - PHARMACEUTICAL PRODUCT COMPLAINT [None]
